FAERS Safety Report 6390650-8 (Version None)
Quarter: 2009Q4

REPORT INFORMATION
  Report Type: 
  Country: None (occurrence: None)
  Receive Date: 20091006
  Receipt Date: 20090924
  Transmission Date: 20100525
  Serious: Yes (Other)
  Sender: FDA-Public Use
  Company Number: AU-PFIZER INC-2009273817

PATIENT
  Age: 49 Year

DRUGS (4)
  1. VERAPAMIL HCL [Suspect]
  2. MORPHINE SULFATE [Suspect]
     Dosage: 600 MG, SINGLE
  3. DIAZEPAM [Suspect]
     Dosage: 250 MG, SINGLE
  4. TRAMADOL [Suspect]
     Dosage: 15 X 200 MG

REACTIONS (5)
  - DISORIENTATION [None]
  - HYPOTENSION [None]
  - INTENTIONAL OVERDOSE [None]
  - NODAL RHYTHM [None]
  - SOMNOLENCE [None]
